FAERS Safety Report 16557286 (Version 3)
Quarter: 2019Q3

REPORT INFORMATION
  Report Type: Spontaneous
  Country: JP (occurrence: JP)
  Receive Date: 20190711
  Receipt Date: 20190823
  Transmission Date: 20191004
  Serious: Yes (Hospitalization, Other)
  Sender: FDA-Public Use
  Company Number: JP-PFIZER INC-2019287751

PATIENT
  Age: 39 Year
  Sex: Female
  Weight: 91.9 kg

DRUGS (4)
  1. IGURATIMOD [Suspect]
     Active Substance: IGURATIMOD
     Dosage: UNK
  2. PREDONINE [PREDNISOLONE ACETATE] [Suspect]
     Active Substance: PREDNISOLONE ACETATE
     Dosage: UNK
  3. XELJANZ [Suspect]
     Active Substance: TOFACITINIB CITRATE
     Indication: RHEUMATOID ARTHRITIS
     Dosage: 5 MG, 2X/DAY
     Route: 048
     Dates: start: 20171212, end: 20180813
  4. XELJANZ [Suspect]
     Active Substance: TOFACITINIB CITRATE
     Dosage: 5 MG, 2X/DAY
     Route: 048
     Dates: start: 20180828, end: 20190608

REACTIONS (1)
  - Enterocolitis [Recovered/Resolved]

NARRATIVE: CASE EVENT DATE: 20190606
